FAERS Safety Report 20802866 (Version 5)
Quarter: 2022Q2

REPORT INFORMATION
  Report Type: Spontaneous
  Country: US (occurrence: US)
  Receive Date: 20220509
  Receipt Date: 20220629
  Transmission Date: 20220721
  Serious: No
  Sender: FDA-Public Use
  Company Number: US-PFIZER INC-202200670769

PATIENT
  Age: 72 Year
  Sex: Female

DRUGS (1)
  1. IBRANCE [Suspect]
     Active Substance: PALBOCICLIB
     Dosage: 125 MG, UNK

REACTIONS (5)
  - Neoplasm progression [Unknown]
  - Dizziness postural [Recovered/Resolved]
  - Fatigue [Recovering/Resolving]
  - Dry mouth [Unknown]
  - Alopecia [Unknown]
